FAERS Safety Report 15300085 (Version 1)
Quarter: 2018Q3

REPORT INFORMATION
  Report Type: Spontaneous
  Country: US (occurrence: US)
  Receive Date: 20180821
  Receipt Date: 20180821
  Transmission Date: 20181010
  Serious: No
  Sender: FDA-Public Use
  Company Number: US-PFIZER INC-2018334815

PATIENT
  Sex: Female

DRUGS (2)
  1. ASPIRIN. [Suspect]
     Active Substance: ASPIRIN
  2. IBUPROFEN. [Suspect]
     Active Substance: IBUPROFEN

REACTIONS (6)
  - Allergic reaction to excipient [Unknown]
  - Muscle spasms [Unknown]
  - Abdominal discomfort [Recovered/Resolved]
  - Abdominal distension [Recovered/Resolved]
  - Pain [Recovered/Resolved]
  - Swelling [Unknown]
